FAERS Safety Report 8339119-1 (Version None)
Quarter: 2012Q2

REPORT INFORMATION
  Report Type: 
  Country: None (occurrence: None)
  Receive Date: 20120507
  Receipt Date: 20120503
  Transmission Date: 20120825
  Serious: No
  Sender: FDA-Public Use
  Company Number: US-PFIZER INC-2012109083

PATIENT
  Sex: Female
  Weight: 88.889 kg

DRUGS (3)
  1. POTASSIUM [Concomitant]
     Indication: MINERAL SUPPLEMENTATION
     Dosage: 10 MEQ, 2X/DAY
  2. LASIX [Concomitant]
     Indication: CARDIAC DISORDER
     Dosage: 40 MG, 2X/DAY
  3. GABAPENTIN [Suspect]
     Indication: DIABETES MELLITUS
     Dosage: 600 MG, 3X/DAY
     Route: 048
     Dates: start: 20110101

REACTIONS (5)
  - MUSCLE SPASMS [None]
  - PLATELET COUNT DECREASED [None]
  - PAIN IN EXTREMITY [None]
  - WHITE BLOOD CELL COUNT DECREASED [None]
  - DRUG INEFFECTIVE [None]
